FAERS Safety Report 9342318 (Version 1)
Quarter: 2013Q2

REPORT INFORMATION
  Report Type: Spontaneous
  Country: US (occurrence: US)
  Receive Date: 20130611
  Receipt Date: 20130611
  Transmission Date: 20140414
  Serious: No
  Sender: FDA-Public Use
  Company Number: US-009507513-1306USA004710

PATIENT
  Sex: Male

DRUGS (2)
  1. DULERA [Suspect]
     Indication: COUGH
     Dosage: 2 PUFFS, BID
     Route: 055
     Dates: start: 20130227, end: 2013
  2. DULERA [Suspect]
     Indication: NASAL CONGESTION

REACTIONS (2)
  - Renal impairment [Not Recovered/Not Resolved]
  - Blood pressure increased [Recovering/Resolving]
